FAERS Safety Report 6477180-X (Version None)
Quarter: 2009Q4

REPORT INFORMATION
  Report Type: 
  Country: None (occurrence: None)
  Receive Date: 20091204
  Receipt Date: 20091204
  Transmission Date: 20100525
  Serious: Yes (Hospitalization)
  Sender: FDA-Public Use
  Company Number: None

PATIENT
  Sex: Female
  Weight: 65.2 kg

DRUGS (8)
  1. TEMOZOLOMIDE [Suspect]
     Indication: ACUTE MYELOID LEUKAEMIA
     Dosage: 200 MG/M2 QD PO
     Route: 048
     Dates: start: 20091002, end: 20091008
  2. MORPHINE [Concomitant]
  3. PYRIDOXINE (VITAMIN B6) [Concomitant]
  4. ISONIAZID [Concomitant]
  5. DOCUSATE (COLACE) [Concomitant]
  6. SIMETHICONE (MYLICON) [Concomitant]
  7. TOBRAMYCIN IN D5W [Concomitant]
  8. VITAMIN B COMPLEX CAP [Concomitant]

REACTIONS (8)
  - ARTHRALGIA [None]
  - CHOLECYSTITIS ACUTE [None]
  - FEBRILE NEUTROPENIA [None]
  - FEELING HOT [None]
  - HYPERAESTHESIA [None]
  - INFECTION [None]
  - JOINT SWELLING [None]
  - PAIN IN EXTREMITY [None]
